FAERS Safety Report 5222178-2 (Version None)
Quarter: 2007Q1

REPORT INFORMATION
  Report Type: 
  Country: None (occurrence: None)
  Receive Date: 20070129
  Receipt Date: 20060829
  Transmission Date: 20070707
  Serious: No
  Sender: FDA-Public Use
  Company Number: US-GLAXOSMITHKLINE-A0618489A

PATIENT
  Age: 18 Year
  Sex: Female

DRUGS (2)
  1. BUPROPION HCL [Suspect]
     Dosage: 150MG TWICE PER DAY
     Route: 048
     Dates: start: 20060825
  2. YASMIN [Concomitant]

REACTIONS (4)
  - DRY MOUTH [None]
  - INSOMNIA [None]
  - NERVOUSNESS [None]
  - THROAT IRRITATION [None]
